FAERS Safety Report 12720604 (Version 3)
Quarter: 2016Q4

REPORT INFORMATION
  Report Type: Spontaneous
  Country: US (occurrence: US)
  Receive Date: 20160907
  Receipt Date: 20161123
  Transmission Date: 20170207
  Serious: Yes (Hospitalization, Other)
  Sender: FDA-Public Use
  Company Number: US-PFIZER INC-2016417407

PATIENT
  Age: 67 Year
  Sex: Male

DRUGS (14)
  1. CORDARONE [Suspect]
     Active Substance: AMIODARONE HYDROCHLORIDE
     Indication: ATRIAL FIBRILLATION
     Dosage: 200 MG, 2X/DAY
     Route: 065
     Dates: start: 201601, end: 201608
  2. VITAMIN D3 [Concomitant]
     Active Substance: CHOLECALCIFEROL
     Dosage: 1000 IU, 1X/DAY [MORNING MEDICATIONS- ONLY]
  3. XARELTO [Concomitant]
     Active Substance: RIVAROXABAN
     Dosage: 20 MG, 1X/DAY [EVENING MEDICATIONS- ONLY]
  4. PROAIR HFA [Concomitant]
     Active Substance: ALBUTEROL SULFATE
     Dosage: 2 DF, AS NEEDED
  5. CORDARONE [Suspect]
     Active Substance: AMIODARONE HYDROCHLORIDE
     Dosage: UNK
     Dates: end: 201609
  6. ATORVASTATIN CALCIUM. [Concomitant]
     Active Substance: ATORVASTATIN CALCIUM
     Dosage: 20 MG, DAILY [(1/2) (20 MG PER DAY) EVENING MEDICATIONS- ONLY]
  7. FUROSEMIDE. [Concomitant]
     Active Substance: FUROSEMIDE
     Dosage: 20 MG, 1X/DAY [MORNING MEDICATIONS- ONLY]
  8. RANITIDINE. [Concomitant]
     Active Substance: RANITIDINE
     Indication: ACIDOSIS
     Dosage: 150 MG, 2X/DAY [MEDICATIONS TAKEN AM AND PM]
  9. PACERONE [Concomitant]
     Active Substance: AMIODARONE HYDROCHLORIDE
     Dosage: 200 MG, 2X/DAY [MEDICATIONS TAKEN AM AND PM]
  10. ALPRAZOLAM. [Concomitant]
     Active Substance: ALPRAZOLAM
     Dosage: UNK UNK, AS NEEDED
  11. ALBUTEROL SULFATE. [Concomitant]
     Active Substance: ALBUTEROL SULFATE
     Dosage: UNK UNK, 2X/DAY [0.083%- 2X^S A DAY]
  12. LACTOBACILLUS [Concomitant]
     Active Substance: LACTOBACILLUS ACIDOPHILUS
     Dosage: UNK
  13. METOPROLOL TARTRATE. [Concomitant]
     Active Substance: METOPROLOL TARTRATE
     Dosage: 12.5 MG, 2X/DAY [(1/2 PILL) (12.5 TWICE A DAY) MEDICATIONS TAKEN AM AND PM]
  14. ASMANEX [Concomitant]
     Active Substance: MOMETASONE FUROATE
     Dosage: 220 UG, 2X/DAY [220 MCG- 2X^S A DAY]

REACTIONS (2)
  - Pneumonitis [Not Recovered/Not Resolved]
  - Product use issue [Unknown]

NARRATIVE: CASE EVENT DATE: 201601
